FAERS Safety Report 19503570 (Version 1)
Quarter: 2021Q3

REPORT INFORMATION
  Report Type: Spontaneous
  Country: CH (occurrence: CH)
  Receive Date: 20210707
  Receipt Date: 20210707
  Transmission Date: 20211014
  Serious: Yes (Hospitalization)
  Sender: FDA-Public Use
  Company Number: CH-ELI_LILLY_AND_COMPANY-CH202106013581

PATIENT
  Age: 77 Year
  Sex: Female

DRUGS (18)
  1. TEMESTA EXPIDET [Suspect]
     Active Substance: LORAZEPAM
     Indication: ANXIETY DISORDER
     Dosage: 2.5 MG, DAILY
     Dates: start: 2015
  2. DAXAS [Suspect]
     Active Substance: ROFLUMILAST
     Indication: CHRONIC OBSTRUCTIVE PULMONARY DISEASE
     Dosage: 500 UG, UNK
     Route: 048
     Dates: start: 2019
  3. ULTIBRO BREEZHALER [GLYCOPYRRONIUM BROMIDE;IN [Concomitant]
     Dosage: UNK UNK, UNKNOWN
     Route: 065
     Dates: start: 2018
  4. SEVIKAR [Suspect]
     Active Substance: AMLODIPINE BESYLATE\OLMESARTAN MEDOXOMIL
     Indication: HYPERTENSION
     Dosage: UNK, DAILY
     Route: 065
     Dates: start: 2011
  5. QUETIAPIN [Suspect]
     Active Substance: QUETIAPINE
     Indication: MAJOR DEPRESSION
     Dosage: 150 MG, UNK
     Route: 048
     Dates: start: 2011
  6. DAFALGAN [Concomitant]
     Active Substance: ACETAMINOPHEN
     Dosage: UNK, PRN
     Route: 065
  7. QUETIAPIN [Suspect]
     Active Substance: QUETIAPINE
     Dosage: 25 MG, UNK
     Route: 048
     Dates: start: 2011
  8. ATORVASTATINE [ATORVASTATIN] [Concomitant]
     Active Substance: ATORVASTATIN
     Dosage: UNK UNK, UNKNOWN
     Route: 065
     Dates: start: 2011
  9. TEMESTA EXPIDET [Suspect]
     Active Substance: LORAZEPAM
     Dosage: .5 MG, UNK
     Route: 048
     Dates: start: 20210520
  10. NEBILET [Concomitant]
     Active Substance: NEBIVOLOL
     Dosage: UNK, UNKNOWN
     Route: 065
     Dates: start: 2014
  11. BECOZYME [NICOTINAMIDE;PYRIDOXINE HYDROCHLORI [Concomitant]
     Dosage: UNK UNK, UNKNOWN
     Route: 065
  12. ZITHROMAX [Concomitant]
     Active Substance: AZITHROMYCIN DIHYDRATE
     Dosage: UNK, UNKNOWN
     Route: 065
     Dates: start: 2015
  13. LAXOBERON [Concomitant]
     Active Substance: SODIUM PICOSULFATE
     Dosage: UNK, PRN
     Route: 065
  14. BENERVA [Concomitant]
     Active Substance: THIAMINE HYDROCHLORIDE
     Dosage: UNK, UNKNOWN
     Route: 065
  15. LUVIT D3 [Concomitant]
     Active Substance: CHOLECALCIFEROL
     Dosage: UNK, UNKNOWN
     Route: 065
  16. CYMBALTA [Suspect]
     Active Substance: DULOXETINE HYDROCHLORIDE
     Indication: DEPRESSION
     Dosage: 30 MG, UNK
     Route: 048
     Dates: start: 2017
  17. TEMESTA EXPIDET [Suspect]
     Active Substance: LORAZEPAM
     Dosage: 1.25 MG, UNK
     Route: 065
     Dates: start: 2015, end: 20210520
  18. VENTOLIN [Suspect]
     Active Substance: ALBUTEROL SULFATE
     Indication: CHRONIC OBSTRUCTIVE PULMONARY DISEASE
     Dosage: 100 UG, UNK
     Route: 055
     Dates: start: 2014, end: 20210521

REACTIONS (6)
  - Muscular weakness [Unknown]
  - Fall [Unknown]
  - Action tremor [Not Recovered/Not Resolved]
  - Chronic obstructive pulmonary disease [Unknown]
  - Inappropriate antidiuretic hormone secretion [Unknown]
  - Pulmonary mass [Unknown]

NARRATIVE: CASE EVENT DATE: 2019
